FAERS Safety Report 4786759-2 (Version None)
Quarter: 2005Q4

REPORT INFORMATION
  Report Type: 
  Country: None (occurrence: None)
  Receive Date: 20051003
  Receipt Date: 20051003
  Transmission Date: 20060501
  Serious: No
  Sender: FDA-Public Use
  Company Number: None

PATIENT
  Age: 36 Year
  Sex: Male
  Weight: 72.5755 kg

DRUGS (1)
  1. LEVAQUIN [Suspect]
     Indication: SINUSITIS
     Dosage: 750MG DAILY X5 DAYS PO
     Route: 048
     Dates: start: 20050729, end: 20050802

REACTIONS (4)
  - ARTHRALGIA [None]
  - MYALGIA [None]
  - PAIN [None]
  - TENDON DISORDER [None]
